FAERS Safety Report 8015591-1 (Version None)
Quarter: 2011Q4

REPORT INFORMATION
  Report Type: 
  Country: None (occurrence: None)
  Receive Date: 20111230
  Receipt Date: 20111222
  Transmission Date: 20120403
  Serious: Yes (Hospitalization)
  Sender: FDA-Public Use
  Company Number: DK-SANOFI-AVENTIS-2011SA083021

PATIENT
  Age: 67 Year
  Sex: Male
  Weight: 90 kg

DRUGS (2)
  1. CABAZITAXEL [Suspect]
     Route: 042
     Dates: start: 20111130, end: 20111130
  2. PREDNISOLONE [Suspect]
     Route: 048
     Dates: start: 20111130, end: 20111216

REACTIONS (2)
  - DISSEMINATED INTRAVASCULAR COAGULATION [None]
  - GASTRITIS [None]
